FAERS Safety Report 5967187-0 (Version None)
Quarter: 2008Q4

REPORT INFORMATION
  Report Type: 
  Country: None (occurrence: None)
  Receive Date: 20081125
  Receipt Date: 20081022
  Transmission Date: 20090506
  Serious: No
  Sender: FDA-Public Use
  Company Number: US-AMGEN-KDL314490

PATIENT
  Sex: Female
  Weight: 71.3 kg

DRUGS (2)
  1. ENBREL [Suspect]
     Indication: ANKYLOSING SPONDYLITIS
     Dates: start: 20081013
  2. BENADRYL [Concomitant]
     Dates: start: 20081019

REACTIONS (4)
  - MIDDLE EAR EFFUSION [None]
  - RHINORRHOEA [None]
  - SINUSITIS [None]
  - TINNITUS [None]
